FAERS Safety Report 7503926-5 (Version None)
Quarter: 2011Q2

REPORT INFORMATION
  Report Type: 
  Country: None (occurrence: None)
  Receive Date: 20110518
  Receipt Date: 20110504
  Transmission Date: 20111010
  Serious: Yes (Hospitalization)
  Sender: FDA-Public Use
  Company Number: ...2011-169

PATIENT
  Age: 28 Year
  Sex: Male
  Weight: 68 kg

DRUGS (10)
  1. BACLOFEN [Suspect]
     Indication: PAIN
     Dosage: 41.7-46 UG/HR
     Dates: start: 20090917
  2. LYRICA [Concomitant]
  3. DRONABIONL [Concomitant]
  4. CYMBALTA [Concomitant]
  5. PRIALT [Suspect]
     Indication: PAIN
     Dosage: 0.21-0.25 UG/HR
     Dates: start: 20070705
  6. NEURONTIN [Concomitant]
  7. W\GEWACALM [Concomitant]
  8. MIRTABENE [Concomitant]
  9. AMITRIPTYLINE HCL [Concomitant]
  10. MEXALEN [Concomitant]

REACTIONS (10)
  - ALCOHOL POISONING [None]
  - DRUG ABUSE [None]
  - ALCOHOL ABUSE [None]
  - CONTUSION [None]
  - ROAD TRAFFIC ACCIDENT [None]
  - EXCORIATION [None]
  - CONDITION AGGRAVATED [None]
  - TOXICITY TO VARIOUS AGENTS [None]
  - NARCISSISTIC PERSONALITY DISORDER [None]
  - FAMILY STRESS [None]
